FAERS Safety Report 9649546 (Version 5)
Quarter: 2014Q2

REPORT INFORMATION
  Report Type: Report from Study
  Country: US (occurrence: US)
  Receive Date: 20131028
  Receipt Date: 20140521
  Transmission Date: 20141212
  Serious: Yes (Hospitalization)
  Sender: FDA-Public Use
  Company Number: US-ACTELION-A-NJ2013-90130

PATIENT
  Age: 67 Year
  Sex: Male

DRUGS (9)
  1. TRACLEER [Suspect]
     Indication: PULMONARY ARTERIAL HYPERTENSION
     Dosage: 125 MG, BID
     Route: 048
     Dates: start: 200807
  2. COLCHICINE [Suspect]
     Indication: GOUT
     Dosage: UNK
     Dates: end: 201310
  3. ALLOPURINOL [Suspect]
     Indication: GOUT
     Dosage: 300 MG, QD
  4. ALLOPURINOL [Suspect]
     Dosage: 100 MG, UNK
  5. COREG [Concomitant]
     Dosage: 25 MG, QID
  6. LASIX [Concomitant]
     Dosage: 80 MG, BID
  7. LANOXIN [Concomitant]
     Dosage: 0.25 MG, HALF QD
  8. INSULIN [Concomitant]
     Dosage: 10 U, QD
  9. POTASSIUM CHLORIDE [Concomitant]
     Dosage: 10 MEQ, UNK

REACTIONS (8)
  - Blood uric acid increased [Unknown]
  - Renal disorder [Recovered/Resolved]
  - Renal failure [Unknown]
  - Oedema peripheral [Unknown]
  - Blood creatinine increased [Unknown]
  - Oedema [Unknown]
  - Pulmonary arterial hypertension [Not Recovered/Not Resolved]
  - Malaise [Not Recovered/Not Resolved]
